FAERS Safety Report 7625937-1 (Version None)
Quarter: 2011Q3

REPORT INFORMATION
  Report Type: 
  Country: None (occurrence: None)
  Receive Date: 20110721
  Receipt Date: 20110721
  Transmission Date: 20111222
  Serious: Yes (Other)
  Sender: FDA-Public Use
  Company Number: None

PATIENT
  Sex: Male
  Weight: 86.182 kg

DRUGS (1)
  1. VARENICLINE TARTRATE [Suspect]
     Dosage: UNKNOWN
     Route: 048

REACTIONS (3)
  - SUICIDAL IDEATION [None]
  - DISORIENTATION [None]
  - HOSTILITY [None]
